FAERS Safety Report 8525314-5 (Version None)
Quarter: 2012Q3

REPORT INFORMATION
  Report Type: 
  Country: None (occurrence: None)
  Receive Date: 20120720
  Receipt Date: 20120718
  Transmission Date: 20120928
  Serious: Yes (Death, Hospitalization, Other)
  Sender: FDA-Public Use
  Company Number: PHHY2010CA65029

PATIENT
  Sex: Female

DRUGS (3)
  1. SANDOSTATIN LAR [Suspect]
     Dosage: 30 MG ONCE MONTHLY
     Route: 030
     Dates: start: 20100805
  2. SANDOSTATIN LAR [Suspect]
     Indication: NEUROENDOCRINE CARCINOMA
     Dosage: 30 MG, EVERY 4 WEEKS
     Route: 030
     Dates: start: 20100805, end: 20101221
  3. CHEMOTHERAPEUTICS NOS [Concomitant]

REACTIONS (9)
  - DEATH [None]
  - NEOPLASM MALIGNANT [None]
  - TUMOUR HAEMORRHAGE [None]
  - FATIGUE [None]
  - ASTHENIA [None]
  - MALAISE [None]
  - NAUSEA [None]
  - PROCEDURAL COMPLICATION [None]
  - WEIGHT DECREASED [None]
